FAERS Safety Report 10446641 (Version 1)
Quarter: 2014Q3

REPORT INFORMATION
  Report Type: Spontaneous
  Country: FR (occurrence: FR)
  Receive Date: 20140911
  Receipt Date: 20140911
  Transmission Date: 20150326
  Serious: Yes (Hospitalization)
  Sender: FDA-Public Use
  Company Number: FR-ACCORD-025839

PATIENT
  Age: 65 Year
  Sex: Male

DRUGS (5)
  1. FOLINIC ACID [Concomitant]
     Active Substance: LEUCOVORIN
     Indication: PANCREATIC CARCINOMA METASTATIC
     Dates: start: 20140707
  2. IRINOTECAN [Suspect]
     Active Substance: IRINOTECAN
     Indication: PANCREATIC CARCINOMA METASTATIC
     Dosage: FIRST COURSE
     Route: 042
     Dates: start: 20140707
  3. FLUOROURACIL. [Suspect]
     Active Substance: FLUOROURACIL
     Indication: PANCREATIC CARCINOMA METASTATIC
     Dosage: FIRST COURSE
     Route: 042
     Dates: start: 20140707
  4. OXALIPLATIN ACCORD [Suspect]
     Active Substance: OXALIPLATIN
     Indication: PANCREATIC CARCINOMA METASTATIC
     Dosage: 5 MG/ML SOLUTION FOR INFUSION
     Route: 042
     Dates: start: 20140707
  5. ORBENINE [Suspect]
     Active Substance: CLOXACILLIN SODIUM
     Indication: CELLULITIS
     Route: 048
     Dates: start: 20140714, end: 20140718

REACTIONS (4)
  - Blood alkaline phosphatase increased [Recovering/Resolving]
  - Transaminases increased [Recovered/Resolved]
  - Gamma-glutamyltransferase increased [Recovering/Resolving]
  - Off label use [Unknown]

NARRATIVE: CASE EVENT DATE: 20140716
